FAERS Safety Report 8341178-7 (Version None)
Quarter: 2012Q2

REPORT INFORMATION
  Report Type: 
  Country: None (occurrence: None)
  Receive Date: 20120507
  Receipt Date: 20120430
  Transmission Date: 20120825
  Serious: Yes (Other)
  Sender: FDA-Public Use
  Company Number: CA-TEVA-336260USA

PATIENT
  Age: 14 Year
  Sex: Female

DRUGS (1)
  1. MINOCYCLINE HCL [Suspect]
     Indication: ACNE
     Route: 065

REACTIONS (4)
  - HEPATITIS [None]
  - AUTOIMMUNE DISORDER [None]
  - ARTHRALGIA [None]
  - POLYARTHRITIS [None]
